FAERS Safety Report 21545130 (Version 3)
Quarter: 2023Q2

REPORT INFORMATION
  Report Type: Report from Study
  Country: BR (occurrence: BR)
  Receive Date: 20221103
  Receipt Date: 20230427
  Transmission Date: 20230722
  Serious: Yes (Other)
  Sender: FDA-Public Use
  Company Number: BR-JNJFOC-20221053353

PATIENT
  Age: 35 Year
  Sex: Female
  Weight: 52 kg

DRUGS (1)
  1. INFLIXIMAB [Suspect]
     Active Substance: INFLIXIMAB
     Indication: Crohn^s disease
     Dosage: 3 AMPOULES EVERY 8 WEEKS
     Route: 041
     Dates: start: 2017

REACTIONS (1)
  - Chorioretinitis [Recovering/Resolving]

NARRATIVE: CASE EVENT DATE: 20210801
